FAERS Safety Report 9741929 (Version 2)
Quarter: 2013Q4

REPORT INFORMATION
  Report Type: Spontaneous
  Country: PL (occurrence: PL)
  Receive Date: 20131210
  Receipt Date: 20131210
  Transmission Date: 20140711
  Serious: Yes (Death, Other)
  Sender: FDA-Public Use
  Company Number: PL-ROCHE-1312685

PATIENT
  Sex: 0

DRUGS (9)
  1. MABTHERA [Suspect]
     Indication: MANTLE CELL LYMPHOMA
     Route: 065
     Dates: start: 20080315
  2. CYCLOPHOSPHAMIDE [Concomitant]
  3. DOXORUBICIN [Concomitant]
  4. VINCRISTINE [Concomitant]
  5. PREDNISONE [Concomitant]
  6. FLUDARABINE [Concomitant]
  7. ZEVALIN [Concomitant]
  8. SOLU-MEDROL [Concomitant]
     Route: 065
     Dates: start: 20130108, end: 20130115
  9. IBRUTINIB [Concomitant]
     Route: 065
     Dates: start: 201305

REACTIONS (8)
  - Death [Fatal]
  - Respiratory failure [Unknown]
  - Granulocytopenia [Unknown]
  - Disease progression [Unknown]
  - Thrombocytopenia [Unknown]
  - Anaemia [Unknown]
  - Neutropenia [Unknown]
  - Pneumonia [Unknown]
